FAERS Safety Report 10425683 (Version 2)
Quarter: 2014Q4

REPORT INFORMATION
  Report Type: Spontaneous
  Country: DE (occurrence: DE)
  Receive Date: 20140903
  Receipt Date: 20141107
  Transmission Date: 20150528
  Serious: Yes (Hospitalization)
  Sender: FDA-Public Use
  Company Number: DE-ROCHE-1456229

PATIENT
  Age: 36 Year
  Sex: Female

DRUGS (2)
  1. XOLAIR [Suspect]
     Active Substance: OMALIZUMAB
     Route: 058
     Dates: start: 20140820
  2. XOLAIR [Suspect]
     Active Substance: OMALIZUMAB
     Indication: MAST CELL ACTIVATION SYNDROME
     Dosage: 2 DF
     Route: 058
     Dates: start: 20140521

REACTIONS (10)
  - Alopecia [Not Recovered/Not Resolved]
  - Fatigue [Recovering/Resolving]
  - Product use issue [Unknown]
  - Hormone level abnormal [Unknown]
  - Skin disorder [Unknown]
  - Headache [Unknown]
  - Erysipelas [Recovered/Resolved]
  - Peripheral swelling [Recovered/Resolved]
  - Eczema [Not Recovered/Not Resolved]
  - Breast discomfort [Unknown]

NARRATIVE: CASE EVENT DATE: 201407
